FAERS Safety Report 19336960 (Version 2)
Quarter: 2021Q3

REPORT INFORMATION
  Report Type: Spontaneous
  Country: MX (occurrence: MX)
  Receive Date: 20210530
  Receipt Date: 20210905
  Transmission Date: 20211014
  Serious: Yes (Other)
  Sender: FDA-Public Use
  Company Number: MX-JNJFOC-20210557110

PATIENT
  Age: 76 Year
  Sex: Male
  Weight: 78 kg

DRUGS (2)
  1. RIVAROXABAN [Suspect]
     Active Substance: RIVAROXABAN
     Indication: PRODUCT USED FOR UNKNOWN INDICATION
     Dosage: 20 MG, QD
     Route: 048
     Dates: start: 20180423
  2. RIVAROXABAN [Suspect]
     Active Substance: RIVAROXABAN
     Dosage: UNK
     Route: 048
     Dates: start: 202104

REACTIONS (3)
  - Gastric ulcer perforation [Unknown]
  - Inappropriate schedule of product administration [Unknown]
  - COVID-19 [Unknown]

NARRATIVE: CASE EVENT DATE: 202102
